FAERS Safety Report 5158342-0 (Version None)
Quarter: 2006Q4

REPORT INFORMATION
  Report Type: 
  Country: None (occurrence: None)
  Receive Date: 20061121
  Receipt Date: 20061121
  Transmission Date: 20070319
  Serious: Yes (Hospitalization)
  Sender: FDA-Public Use
  Company Number: None

PATIENT
  Age: 49 Year
  Sex: Female

DRUGS (11)
  1. RITUXAN [Suspect]
     Indication: BURKITT'S LYMPHOMA
     Dosage: 160 MG ONCE IV
     Route: 042
  2. RITUXAN [Suspect]
     Indication: LYMPHOMA AIDS RELATED
     Dosage: 160 MG ONCE IV
     Route: 042
  3. PERCOCET [Concomitant]
  4. KLONOPIN [Concomitant]
  5. FLUPHENAZINE [Concomitant]
  6. TRAZODONE HCL [Concomitant]
  7. LANTUS [Concomitant]
  8. PIOGLITAZONE HCL [Concomitant]
  9. EFAVIRENZ [Concomitant]
  10. TRUVUDA [Concomitant]
  11. LITHIUM CARBONATE [Concomitant]

REACTIONS (1)
  - PYREXIA [None]
